FAERS Safety Report 25220386 (Version 1)
Quarter: 2025Q2

REPORT INFORMATION
  Report Type: Spontaneous
  Country: US (occurrence: US)
  Receive Date: 20250421
  Receipt Date: 20250421
  Transmission Date: 20250716
  Serious: No
  Sender: BRISTOL-MYERS SQUIBB COMPANY
  Company Number: US-BRISTOL-MYERS SQUIBB COMPANY-2025-058458

PATIENT
  Age: 65 Year
  Sex: Female

DRUGS (1)
  1. ELIQUIS [Suspect]
     Active Substance: APIXABAN
     Indication: Cardiac ablation

REACTIONS (6)
  - Off label use [Unknown]
  - Food allergy [Unknown]
  - Arthropod bite [Unknown]
  - Rash [Unknown]
  - Nausea [Unknown]
  - Drug hypersensitivity [Unknown]
